FAERS Safety Report 6078570-X (Version None)
Quarter: 2009Q1

REPORT INFORMATION
  Report Type: 
  Country: None (occurrence: None)
  Receive Date: 20090212
  Receipt Date: 20090130
  Transmission Date: 20090719
  Serious: Yes (Other)
  Sender: FDA-Public Use
  Company Number: 2009AL000647

PATIENT
  Age: 70 Year
  Sex: Female

DRUGS (14)
  1. LIDOCAINE HYDROCHLORIDE 2% [Suspect]
     Indication: DRUG USE FOR UNKNOWN INDICATION
     Dosage: 5 PCT; QD; TOP
     Route: 061
     Dates: start: 20081106
  2. GABAPENTIN [Concomitant]
  3. WARFARIN [Concomitant]
  4. ACETAMINOPHEN [Concomitant]
  5. PREDNISOLONE [Concomitant]
  6. OMEPRAZOLE [Concomitant]
  7. BENDROFLUMETHIAZIDE [Concomitant]
  8. CYCLIZINE [Concomitant]
  9. VERAPAMIL [Concomitant]
  10. FENTANYL [Concomitant]
  11. PARAFFIN SOFT WHITE [Concomitant]
  12. GLIPIZIDE [Concomitant]
  13. AZIDOTHYMIDINE [Concomitant]
  14. CYCLOSPORINE [Concomitant]

REACTIONS (2)
  - BLISTER [None]
  - RASH [None]
